FAERS Safety Report 9531453 (Version 1)
Quarter: 2013Q2

REPORT INFORMATION
  Report Type: Spontaneous
  Country: DE (occurrence: None)
  Receive Date: 20130404
  Receipt Date: 20130404
  Transmission Date: 20140414
  Serious: Yes (Other)
  Sender: FDA-Public Use
  Company Number: E2B_00000162

PATIENT
  Sex: Female
  Weight: 3.82 kg

DRUGS (4)
  1. SERTRALINE [Suspect]
     Indication: PERSONALITY DISORDER
     Route: 064
  2. RISPERIDONE ( RISPERIDONE) [Suspect]
     Indication: PERSONALITY DISORDER
     Route: 064
     Dates: start: 20101207, end: 20110901
  3. INSULIN ISOPHANE + HUUMAN BIOSYNTHETIC (PROTAPHANE) [Concomitant]
  4. INSULIN HUMAN (ACTRAPID) [Concomitant]

REACTIONS (2)
  - Neonatal respiratory distress syndrome [None]
  - Hypertonia neonatal [None]
